FAERS Safety Report 9444974 (Version 1)
Quarter: 2013Q3

REPORT INFORMATION
  Report Type: Spontaneous
  Country: CN (occurrence: None)
  Receive Date: 20130802
  Receipt Date: 20130802
  Transmission Date: 20140515
  Serious: Yes (Hospitalization)
  Sender: FDA-Public Use
  Company Number: TPA2013A07171

PATIENT
  Age: 58 Year
  Sex: Male

DRUGS (3)
  1. FEBUXOSTAT [Suspect]
     Indication: HYPERURICAEMIA
     Route: 048
     Dates: start: 20130522
  2. FEBUXOSTAT [Suspect]
     Indication: GOUT
     Route: 048
     Dates: start: 20130522
  3. AMLODIPINE BESYLATE (AMLODIPINE BESILATE) [Concomitant]

REACTIONS (2)
  - Road traffic accident [None]
  - Foot fracture [None]
